FAERS Safety Report 13068555 (Version 1)
Quarter: 2016Q4

REPORT INFORMATION
  Report Type: Spontaneous
  Country: US (occurrence: US)
  Receive Date: 20161227
  Receipt Date: 20161227
  Transmission Date: 20170207
  Serious: Yes (Life-Threatening, Other)
  Sender: FDA-Public Use
  Company Number: None

PATIENT
  Age: 23 Year
  Sex: Female
  Weight: 121 kg

DRUGS (1)
  1. CEFEPIME IN D5W BRAUN [Suspect]
     Active Substance: CEFEPIME HYDROCHLORIDE
     Indication: OTITIS EXTERNA
     Route: 041
     Dates: start: 20161227, end: 20161227

REACTIONS (7)
  - Piloerection [None]
  - Cardio-respiratory arrest [None]
  - Secretion discharge [None]
  - Hyperventilation [None]
  - Unresponsive to stimuli [None]
  - Infusion related reaction [None]
  - Dysgeusia [None]

NARRATIVE: CASE EVENT DATE: 20161227
